FAERS Safety Report 10280885 (Version 1)
Quarter: 2014Q3

REPORT INFORMATION
  Report Type: Spontaneous
  Country: US (occurrence: US)
  Receive Date: 20140707
  Receipt Date: 20140707
  Transmission Date: 20150326
  Serious: No
  Sender: FDA-Public Use
  Company Number: US-AMGEN-USASP2014042509

PATIENT
  Age: 68 Year
  Sex: Male

DRUGS (1)
  1. ENBREL [Suspect]
     Active Substance: ETANERCEPT
     Indication: PSORIASIS
     Dosage: 50 MG, QWK
     Route: 065
     Dates: start: 20130701

REACTIONS (5)
  - Pain [Unknown]
  - Urticaria [Unknown]
  - Injection site exfoliation [Unknown]
  - Injection site reaction [Recovered/Resolved]
  - Pruritus generalised [Not Recovered/Not Resolved]

NARRATIVE: CASE EVENT DATE: 201401
